FAERS Safety Report 20729205 (Version 1)
Quarter: 2022Q2

REPORT INFORMATION
  Report Type: Report from Study
  Country: CN (occurrence: CN)
  Receive Date: 20220420
  Receipt Date: 20220420
  Transmission Date: 20220720
  Serious: Yes (Hospitalization)
  Sender: FDA-Public Use
  Company Number: CN-AFFAMED-2021AFFAMED00015

PATIENT
  Age: 53 Year
  Weight: 60 kg

DRUGS (19)
  1. TRASTUZUMAB-DTTB [Suspect]
     Active Substance: TRASTUZUMAB-DTTB
     Indication: Breast cancer
     Dosage: 360 MG, CYCLIC
  2. TRASTUZUMAB-DTTB [Suspect]
     Active Substance: TRASTUZUMAB-DTTB
     Dosage: 420 MG, CYCLIC
  3. TRASTUZUMAB-DTTB [Suspect]
     Active Substance: TRASTUZUMAB-DTTB
     Dosage: 544.0 MG
  4. TRASTUZUMAB-DTTB [Suspect]
     Active Substance: TRASTUZUMAB-DTTB
     Dosage: 408.0 MG, CYCLIC
  5. TRASTUZUMAB-DTTB [Suspect]
     Active Substance: TRASTUZUMAB-DTTB
     Dosage: 408.0 MG, CYCLIC
  6. TRASTUZUMAB-DTTB [Suspect]
     Active Substance: TRASTUZUMAB-DTTB
     Dosage: 408.0 MG, CYCLIC
  7. TRASTUZUMAB-DTTB [Suspect]
     Active Substance: TRASTUZUMAB-DTTB
     Dosage: 408.0 MG, CYCLIC
  8. TRASTUZUMAB-DTTB [Suspect]
     Active Substance: TRASTUZUMAB-DTTB
     Dosage: 408.0 MG, CYCLIC
  9. TRASTUZUMAB-DTTB [Suspect]
     Active Substance: TRASTUZUMAB-DTTB
     Dosage: 544 MG, CYCLIC
  10. TRASTUZUMAB-DTTB [Suspect]
     Active Substance: TRASTUZUMAB-DTTB
     Dosage: 408 MG, CYCLIC
  11. TRASTUZUMAB-DTTB [Suspect]
     Active Substance: TRASTUZUMAB-DTTB
     Dosage: 408 MG, CYCLIC
  12. TRASTUZUMAB-DTTB [Suspect]
     Active Substance: TRASTUZUMAB-DTTB
     Dosage: 408 MG, CYCLIC
  13. TRASTUZUMAB-DTTB [Suspect]
     Active Substance: TRASTUZUMAB-DTTB
     Dosage: 408 MG, CYCLIC
  14. TRASTUZUMAB-DTTB [Suspect]
     Active Substance: TRASTUZUMAB-DTTB
     Dosage: 408 MG, CYCLIC
  15. TRASTUZUMAB-DTTB [Suspect]
     Active Substance: TRASTUZUMAB-DTTB
     Dosage: 408 MG, CYCLIC
  16. TRASTUZUMAB-DTTB [Suspect]
     Active Substance: TRASTUZUMAB-DTTB
     Dosage: 360 MG, CYCLIC
  17. PERJETA [Suspect]
     Active Substance: PERTUZUMAB
     Indication: Breast cancer
  18. DOCETAXEL [Concomitant]
     Active Substance: DOCETAXEL
  19. CARBOPLATIN [Concomitant]
     Active Substance: CARBOPLATIN

REACTIONS (1)
  - Pyrexia [Recovered/Resolved]
